FAERS Safety Report 12478886 (Version 2)
Quarter: 2016Q3

REPORT INFORMATION
  Report Type: Report from Study
  Country: JP (occurrence: JP)
  Receive Date: 20160620
  Receipt Date: 20160804
  Transmission Date: 20161109
  Serious: Yes (Hospitalization, Other)
  Sender: FDA-Public Use
  Company Number: JP-BRISTOL-MYERS SQUIBB COMPANY-BMS-2015-051240

PATIENT
  Age: 56 Year
  Sex: Male

DRUGS (17)
  1. NIVOLUMAB [Suspect]
     Active Substance: NIVOLUMAB
     Dosage: 2 MG/KG, QD
     Route: 041
     Dates: start: 20150604, end: 20150604
  2. NIVOLUMAB [Suspect]
     Active Substance: NIVOLUMAB
     Dosage: 2 MG/KG, QD
     Route: 041
     Dates: start: 20150423, end: 20150423
  3. NIVOLUMAB [Suspect]
     Active Substance: NIVOLUMAB
     Indication: MALIGNANT MELANOMA
     Dosage: 2 MG/KG, QD
     Route: 041
     Dates: start: 20141030, end: 20141030
  4. NIVOLUMAB [Suspect]
     Active Substance: NIVOLUMAB
     Dosage: 2 MG/KG, QD
     Route: 041
     Dates: start: 20140808, end: 20140808
  5. NIVOLUMAB [Suspect]
     Active Substance: NIVOLUMAB
     Dosage: 2 MG/KG, QD
     Route: 041
     Dates: start: 20140918, end: 20140918
  6. NIVOLUMAB [Suspect]
     Active Substance: NIVOLUMAB
     Dosage: 2 MG/KG, QD
     Route: 065
     Dates: start: 20141009, end: 20141009
  7. NIVOLUMAB [Suspect]
     Active Substance: NIVOLUMAB
     Dosage: 2 MG/KG, QD
     Route: 041
     Dates: start: 20141120, end: 20141120
  8. NIVOLUMAB [Suspect]
     Active Substance: NIVOLUMAB
     Dosage: 2 MG/KG, QD
     Route: 041
     Dates: start: 20150129, end: 20150129
  9. NIVOLUMAB [Suspect]
     Active Substance: NIVOLUMAB
     Dosage: 2 MG/KG, QD
     Route: 041
     Dates: start: 20150312, end: 20150312
  10. NIVOLUMAB [Suspect]
     Active Substance: NIVOLUMAB
     Dosage: 2 MG/KG, QD
     Route: 041
     Dates: start: 20141211, end: 20141211
  11. NIVOLUMAB [Suspect]
     Active Substance: NIVOLUMAB
     Dosage: 2 MG/KG, QD
     Route: 041
     Dates: start: 20150108, end: 20150108
  12. NIVOLUMAB [Suspect]
     Active Substance: NIVOLUMAB
     Dosage: 2 MG/KG, QD
     Route: 041
     Dates: start: 20150625, end: 20150625
  13. NIVOLUMAB [Suspect]
     Active Substance: NIVOLUMAB
     Dosage: 2 MG/KG, QD
     Route: 041
     Dates: start: 20150716, end: 20150716
  14. NIVOLUMAB [Suspect]
     Active Substance: NIVOLUMAB
     Dosage: 2 MG/KG, QD
     Route: 041
     Dates: start: 20160219, end: 20160219
  15. RINDERON                           /00008501/ [Concomitant]
     Active Substance: BETAMETHASONE
     Indication: PRODUCT USED FOR UNKNOWN INDICATION
     Dosage: UNK
     Route: 065
     Dates: start: 20110809
  16. NIVOLUMAB [Suspect]
     Active Substance: NIVOLUMAB
     Dosage: 2 MG/KG, QD
     Route: 041
     Dates: start: 20150402, end: 20150402
  17. NIVOLUMAB [Suspect]
     Active Substance: NIVOLUMAB
     Dosage: 2 MG/KG, QD
     Route: 041
     Dates: start: 20150812, end: 20150812

REACTIONS (3)
  - Aspartate aminotransferase increased [Recovered/Resolved]
  - Pneumonia bacterial [Recovered/Resolved]
  - Alanine aminotransferase increased [Recovered/Resolved]

NARRATIVE: CASE EVENT DATE: 20141119
